FAERS Safety Report 21492412 (Version 1)
Quarter: 2022Q4

REPORT INFORMATION
  Report Type: Spontaneous
  Country: US (occurrence: US)
  Receive Date: 20221021
  Receipt Date: 20221021
  Transmission Date: 20230113
  Serious: No
  Sender: FDA-Public Use
  Company Number: US-SA-SAC20221017001728

PATIENT
  Age: 68 Year
  Sex: Male

DRUGS (16)
  1. DUPIXENT [Suspect]
     Active Substance: DUPILUMAB
     Indication: Illness
     Dosage: 300 MG, QOW
     Route: 058
     Dates: start: 20220923
  2. DUPIXENT [Suspect]
     Active Substance: DUPILUMAB
     Indication: Dermatitis atopic
  3. ATORVASTATIN CALCIUM [Concomitant]
     Active Substance: ATORVASTATIN CALCIUM
  4. GABAPENTIN [Concomitant]
     Active Substance: GABAPENTIN
  5. ESTRADIOL [Concomitant]
     Active Substance: ESTRADIOL
  6. SPIRONOLACTONE [Concomitant]
     Active Substance: SPIRONOLACTONE
  7. WELLBUTRIN [Concomitant]
     Active Substance: BUPROPION HYDROCHLORIDE
  8. NAPROXEN [Concomitant]
     Active Substance: NAPROXEN
  9. TYLENOL [Concomitant]
     Active Substance: ACETAMINOPHEN
  10. TRAMADOL [Concomitant]
     Active Substance: TRAMADOL
  11. METHOCARBAMOL [Concomitant]
     Active Substance: METHOCARBAMOL
  12. HYDROXYZINE HYDROCHLORIDE [Concomitant]
     Active Substance: HYDROXYZINE HYDROCHLORIDE
  13. POTASSIUM CHLORIDE [Concomitant]
     Active Substance: POTASSIUM CHLORIDE
  14. OMEPRAZOLE [Concomitant]
     Active Substance: OMEPRAZOLE
  15. PRAMIPEXOLE DIHYDROCHLORIDE [Concomitant]
     Active Substance: PRAMIPEXOLE DIHYDROCHLORIDE
  16. HERBALS\TURMERIC [Concomitant]
     Active Substance: HERBALS\TURMERIC

REACTIONS (2)
  - Pruritus [Recovered/Resolved]
  - Oral herpes [Recovering/Resolving]
